FAERS Safety Report 8802572 (Version 3)
Quarter: 2013Q2

REPORT INFORMATION
  Report Type: Spontaneous
  Country: JP (occurrence: JP)
  Receive Date: 20120921
  Receipt Date: 20130410
  Transmission Date: 20140414
  Serious: Yes (Other)
  Sender: FDA-Public Use
  Company Number: PHHY2012JP080345

PATIENT
  Age: 13 Year
  Sex: Female

DRUGS (3)
  1. VINCRISTINE [Suspect]
     Indication: BURKITT^S LYMPHOMA
     Route: 048
  2. METHOTREXATE [Suspect]
     Indication: BURKITT^S LYMPHOMA
  3. DEXAMETHASONE [Suspect]
     Indication: BURKITT^S LYMPHOMA

REACTIONS (3)
  - Posterior reversible encephalopathy syndrome [Unknown]
  - Convulsion [Unknown]
  - Central nervous system lesion [Unknown]
